FAERS Safety Report 16782504 (Version 1)
Quarter: 2019Q3

REPORT INFORMATION
  Report Type: Spontaneous
  Country: US (occurrence: US)
  Receive Date: 20190717
  Receipt Date: 20190717
  Transmission Date: 20191005
  Serious: Yes (Hospitalization)
  Sender: FDA-Public Use
  Company Number: None

PATIENT
  Age: 60 Year
  Sex: Female

DRUGS (26)
  1. ATORVASTATIN [Concomitant]
     Active Substance: ATORVASTATIN
  2. BUPROPION. [Concomitant]
     Active Substance: BUPROPION
  3. CARTIA XT [Concomitant]
     Active Substance: DILTIAZEM HYDROCHLORIDE
  4. DILTIAZEM. [Concomitant]
     Active Substance: DILTIAZEM
  5. FLUOXETINE [Concomitant]
     Active Substance: FLUOXETINE HYDROCHLORIDE
  6. ILEVRO [Concomitant]
     Active Substance: NEPAFENAC
  7. FOLIC ACID. [Concomitant]
     Active Substance: FOLIC ACID
  8. LOTEMAX [Concomitant]
     Active Substance: LOTEPREDNOL ETABONATE
  9. METFORMIN [Concomitant]
     Active Substance: METFORMIN HYDROCHLORIDE
  10. RESTASIS [Concomitant]
     Active Substance: CYCLOSPORINE
  11. ACYCLOVIR. [Concomitant]
     Active Substance: ACYCLOVIR
  12. LEVOTHYROXIN [Concomitant]
     Active Substance: LEVOTHYROXINE
  13. NASONEX [Concomitant]
     Active Substance: MOMETASONE FUROATE
  14. HUMIRA [Suspect]
     Active Substance: ADALIMUMAB
     Indication: RHEUMATOID ARTHRITIS
     Route: 058
     Dates: start: 20160401
  15. ADVAIR HFA [Concomitant]
     Active Substance: FLUTICASONE PROPIONATE\SALMETEROL XINAFOATE
  16. DIAZEPAM. [Concomitant]
     Active Substance: DIAZEPAM
  17. BUSPIRONE [Concomitant]
     Active Substance: BUSPIRONE HYDROCHLORIDE
  18. LASTACAFT [Concomitant]
     Active Substance: ALCAFTADINE
  19. LOSARTAN POT [Concomitant]
     Active Substance: LOSARTAN POTASSIUM
  20. VITAMIN D3 [Concomitant]
     Active Substance: CHOLECALCIFEROL
  21. TRANSDERM-SC [Concomitant]
  22. DUREZOL [Concomitant]
     Active Substance: DIFLUPREDNATE
  23. SYSTANE SOL [Concomitant]
  24. CLARITIN [Concomitant]
     Active Substance: LORATADINE
  25. OFLOXACIN. [Concomitant]
     Active Substance: OFLOXACIN
  26. PROARI HFA [Concomitant]

REACTIONS (2)
  - Cataract operation [None]
  - Therapy cessation [None]

NARRATIVE: CASE EVENT DATE: 20190709
